FAERS Safety Report 7898875-7 (Version None)
Quarter: 2011Q4

REPORT INFORMATION
  Report Type: 
  Country: None (occurrence: None)
  Receive Date: 20111107
  Receipt Date: 20111102
  Transmission Date: 20120403
  Serious: Yes (Other)
  Sender: FDA-Public Use
  Company Number: US-PFIZER INC-2011268602

PATIENT
  Sex: Female
  Weight: 68.027 kg

DRUGS (1)
  1. GEODON [Suspect]
     Dosage: UNK

REACTIONS (5)
  - WEIGHT DECREASED [None]
  - PAIN [None]
  - DYSKINESIA [None]
  - TOOTHACHE [None]
  - MALAISE [None]
